FAERS Safety Report 16411479 (Version 3)
Quarter: 2019Q3

REPORT INFORMATION
  Report Type: Spontaneous
  Country: MM (occurrence: MM)
  Receive Date: 20190610
  Receipt Date: 20190702
  Transmission Date: 20191004
  Serious: Yes (Death, Hospitalization, Other)
  Sender: FDA-Public Use
  Company Number: MM-JNJFOC-20190604520

PATIENT
  Age: 21 Year
  Sex: Male
  Weight: 37 kg

DRUGS (13)
  1. BEDAQUILINE TABLET [Suspect]
     Active Substance: BEDAQUILINE
     Route: 048
     Dates: start: 20190329, end: 20190530
  2. PARA-AMINOSALICYLIC ACID [Suspect]
     Active Substance: AMINOSALICYLIC ACID
     Indication: TUBERCULOSIS
     Route: 065
     Dates: start: 20190222, end: 20190312
  3. BEDAQUILINE TABLET [Suspect]
     Active Substance: BEDAQUILINE
     Indication: TUBERCULOSIS
     Route: 048
     Dates: start: 20190222, end: 20190312
  4. LINEZOLID. [Suspect]
     Active Substance: LINEZOLID
     Indication: TUBERCULOSIS
     Route: 065
     Dates: start: 20190222, end: 20190312
  5. LINEZOLID. [Suspect]
     Active Substance: LINEZOLID
     Route: 065
     Dates: start: 20190527, end: 20190530
  6. PARA-AMINOSALICYLIC ACID [Suspect]
     Active Substance: AMINOSALICYLIC ACID
     Route: 065
     Dates: end: 20190530
  7. PYRAZINAMIDE. [Suspect]
     Active Substance: PYRAZINAMIDE
     Indication: TUBERCULOSIS
     Route: 065
     Dates: start: 20190222, end: 20190312
  8. PYRAZINAMIDE. [Suspect]
     Active Substance: PYRAZINAMIDE
     Route: 065
     Dates: start: 20190329, end: 20190530
  9. CLOFAZIMINE [Suspect]
     Active Substance: CLOFAZIMINE
     Route: 065
     Dates: start: 20190329, end: 20190530
  10. DELAMANID [Suspect]
     Active Substance: DELAMANID
     Indication: TUBERCULOSIS
     Route: 065
     Dates: start: 20190222, end: 20190312
  11. CLOFAZIMINE [Suspect]
     Active Substance: CLOFAZIMINE
     Indication: TUBERCULOSIS
     Route: 065
     Dates: start: 20190222, end: 20190312
  12. DELAMANID [Suspect]
     Active Substance: DELAMANID
     Route: 065
     Dates: start: 20190329, end: 20190530
  13. LINEZOLID. [Suspect]
     Active Substance: LINEZOLID
     Route: 065
     Dates: start: 20190329

REACTIONS (12)
  - Electrocardiogram QT prolonged [Recovered/Resolved]
  - Diarrhoea [Recovered/Resolved]
  - Respiratory failure [Fatal]
  - Increased appetite [Unknown]
  - Back pain [Unknown]
  - Alanine aminotransferase increased [Unknown]
  - Hypocalcaemia [Unknown]
  - Hypokalaemia [Unknown]
  - Vomiting [Not Recovered/Not Resolved]
  - Aspartate aminotransferase increased [Unknown]
  - Anaemia [Unknown]
  - Syncope [Unknown]

NARRATIVE: CASE EVENT DATE: 2019
